FAERS Safety Report 5456650-7 (Version None)
Quarter: 2007Q3

REPORT INFORMATION
  Report Type: 
  Country: None (occurrence: None)
  Receive Date: 20070918
  Receipt Date: 20070906
  Transmission Date: 20080115
  Serious: Yes (Other)
  Sender: FDA-Public Use
  Company Number: US-ELI_LILLY_AND_COMPANY-US200706005488

PATIENT
  Age: 51 Year
  Sex: Female
  Weight: 97.505 kg

DRUGS (4)
  1. MINOCIN [Concomitant]
     Indication: ROSACEA
  2. CYMBALTA [Suspect]
     Indication: BACK PAIN
     Dosage: 30 MG, DAILY (1/D)
     Dates: start: 20061211, end: 20061225
  3. CYMBALTA [Suspect]
     Dosage: 60 MG, DAILY (1/D)
     Dates: start: 20061226, end: 20070206
  4. CELEBREX [Concomitant]
     Dosage: 200 MG, DAILY (1/D)

REACTIONS (1)
  - HEPATITIS [None]
